FAERS Safety Report 10962755 (Version 6)
Quarter: 2015Q2

REPORT INFORMATION
  Report Type: Spontaneous
  Country: JP (occurrence: JP)
  Receive Date: 20150327
  Receipt Date: 20150423
  Transmission Date: 20150821
  Serious: Yes (Death, Other)
  Sender: FDA-Public Use
  Company Number: JP-ASTRAZENECA-2015SE27302

PATIENT
  Age: 733 Month
  Sex: Male
  Weight: 80.5 kg

DRUGS (28)
  1. TRANSAMIN [Concomitant]
     Active Substance: TRANEXAMIC ACID
     Indication: PHARYNGITIS
     Route: 048
     Dates: start: 20150316, end: 20150317
  2. SHINLUCK [Concomitant]
     Route: 048
     Dates: start: 20140523
  3. EQUA [Suspect]
     Active Substance: VILDAGLIPTIN
     Indication: TYPE 2 DIABETES MELLITUS
     Route: 048
     Dates: start: 20140205, end: 20150317
  4. MICARDIS [Concomitant]
     Active Substance: TELMISARTAN
     Indication: HYPERTENSION
     Route: 048
     Dates: start: 20140508, end: 20150317
  5. SENNOSIDE [Concomitant]
     Active Substance: SENNOSIDES
     Indication: CONSTIPATION
     Route: 048
     Dates: start: 20140508, end: 20150317
  6. GLIMEPIRIDE. [Concomitant]
     Active Substance: GLIMEPIRIDE
     Indication: TYPE 2 DIABETES MELLITUS
     Route: 048
     Dates: start: 20140205, end: 20150317
  7. METGLUCO [Concomitant]
     Active Substance: METFORMIN HYDROCHLORIDE
     Indication: TYPE 2 DIABETES MELLITUS
     Route: 048
     Dates: start: 20140910, end: 20141008
  8. MAGMITT [Concomitant]
     Active Substance: MAGNESIUM OXIDE
     Indication: CONSTIPATION
     Route: 048
     Dates: start: 20140508, end: 20150317
  9. PIOGLITAZONE [Concomitant]
     Active Substance: PIOGLITAZONE
     Route: 048
     Dates: start: 20140827
  10. ACTOS [Concomitant]
     Active Substance: PIOGLITAZONE HYDROCHLORIDE
     Indication: TYPE 2 DIABETES MELLITUS
     Dosage: DOSE UNKNOWN
     Route: 065
     Dates: start: 20140827
  11. VICTOZA [Concomitant]
     Active Substance: LIRAGLUTIDE
     Indication: TYPE 2 DIABETES MELLITUS
     Dosage: DOSE UNKNOWN
     Route: 065
     Dates: end: 2014
  12. LEVOTOMIN [Concomitant]
     Active Substance: LEVOMEPROMAZINE
     Route: 048
  13. DEPAS [Concomitant]
     Active Substance: ETIZOLAM
     Route: 048
  14. ROCEPHIN [Concomitant]
     Active Substance: CEFTRIAXONE SODIUM
     Indication: PNEUMONIA
     Route: 041
     Dates: start: 20150316, end: 20150317
  15. CRESTOR [Concomitant]
     Active Substance: ROSUVASTATIN CALCIUM
     Indication: HYPERCHOLESTEROLAEMIA
     Route: 048
     Dates: start: 20140205, end: 20150317
  16. LACB R [Concomitant]
     Indication: ENTEROCOLITIS
     Route: 048
     Dates: start: 20140508, end: 20150114
  17. ZETIA [Concomitant]
     Active Substance: EZETIMIBE
     Route: 048
     Dates: start: 20141218
  18. BAYASPIRIN [Concomitant]
     Active Substance: ASPIRIN
     Indication: CEREBRAL INFARCTION
     Route: 048
     Dates: start: 20140508, end: 20150317
  19. FORXIGA [Suspect]
     Active Substance: DAPAGLIFLOZIN
     Indication: TYPE 2 DIABETES MELLITUS
     Route: 048
     Dates: start: 20140418, end: 20150317
  20. METGLUCO [Concomitant]
     Active Substance: METFORMIN HYDROCHLORIDE
     Indication: TYPE 2 DIABETES MELLITUS
     Route: 048
     Dates: start: 20140205, end: 20140305
  21. METGLUCO [Concomitant]
     Active Substance: METFORMIN HYDROCHLORIDE
     Indication: TYPE 2 DIABETES MELLITUS
     Route: 048
     Dates: start: 20140306, end: 20140826
  22. MUCODYNE [Concomitant]
     Active Substance: CARBOCYSTEINE
     Indication: PHARYNGITIS
     Route: 048
     Dates: start: 20150316, end: 20150317
  23. COLONEL [Concomitant]
     Active Substance: CALCIUM POLYCARBOPHIL
     Indication: ENTEROCOLITIS
     Route: 048
     Dates: start: 20140508, end: 20150114
  24. TEGRETOL [Concomitant]
     Active Substance: CARBAMAZEPINE
     Route: 048
  25. AMOBAN [Concomitant]
     Active Substance: ZOPICLONE
     Route: 048
  26. METGLUCO [Concomitant]
     Active Substance: METFORMIN HYDROCHLORIDE
     Indication: TYPE 2 DIABETES MELLITUS
     Route: 048
     Dates: start: 20141009, end: 20150225
  27. METGLUCO [Concomitant]
     Active Substance: METFORMIN HYDROCHLORIDE
     Indication: TYPE 2 DIABETES MELLITUS
     Route: 048
     Dates: start: 20150226
  28. AKINETON [Concomitant]
     Active Substance: BIPERIDEN HYDROCHLORIDE
     Route: 048

REACTIONS (10)
  - Ketoacidosis [Unknown]
  - Cough [Unknown]
  - PO2 decreased [Unknown]
  - Headache [Recovered/Resolved]
  - Intentional product misuse [Unknown]
  - Dehydration [Unknown]
  - Pneumonia bacterial [Fatal]
  - Asphyxia [Fatal]
  - Nasopharyngitis [Unknown]
  - Decreased appetite [Unknown]

NARRATIVE: CASE EVENT DATE: 201403
